FAERS Safety Report 4631432-4 (Version None)
Quarter: 2005Q2

REPORT INFORMATION
  Report Type: 
  Country: None (occurrence: None)
  Receive Date: 20050407
  Receipt Date: 20050325
  Transmission Date: 20051028
  Serious: Yes (Other)
  Sender: FDA-Public Use
  Company Number: 2005049932

PATIENT
  Age: 42 Year
  Sex: Female
  Weight: 52.1637 kg

DRUGS (7)
  1. BEXTRA [Suspect]
     Indication: MYALGIA
     Dosage: 20 MG (10 MG, 2 IN 1 D), ORAL
     Route: 048
     Dates: start: 20050323, end: 20050323
  2. CELEBREX [Suspect]
     Indication: MYALGIA
     Dosage: 600 MG (200 MG), ORAL
     Route: 048
  3. BENADRYL [Suspect]
     Indication: SLEEP DISORDER
     Dosage: (50 MG)
  4. NAPROXEN SODIUM [Suspect]
     Indication: MYALGIA
  5. PREDNISONE [Suspect]
     Indication: MYALGIA
     Dosage: 20 MG (20 MG, 1 IN 1 D), ORAL
     Route: 048
     Dates: start: 20050324
  6. IBUPROFEN [Suspect]
     Indication: MYALGIA
     Dosage: 800 MG (200 MG)
  7. INSULIN [Concomitant]

REACTIONS (6)
  - DRUG INEFFECTIVE [None]
  - EYELID OEDEMA [None]
  - FACE OEDEMA [None]
  - HAEMORRHAGE [None]
  - MEDICAL DEVICE COMPLICATION [None]
  - RASH PAPULAR [None]
